FAERS Safety Report 9702178 (Version 1)
Quarter: 2013Q4

REPORT INFORMATION
  Report Type: Spontaneous
  Country: US (occurrence: US)
  Receive Date: 20131121
  Receipt Date: 20131121
  Transmission Date: 20140711
  Serious: Yes (Death, Hospitalization)
  Sender: FDA-Public Use
  Company Number: US-B.I. PHARMACEUTICALS,INC./RIDGEFIELD-2013-BI-38197BP

PATIENT
  Age: 89 Year
  Sex: Female
  Weight: 79 kg

DRUGS (4)
  1. AGGRENOX [Suspect]
     Indication: CEREBROVASCULAR ACCIDENT PROPHYLAXIS
     Dosage: STRENGTH: 25 MG / 200 MG; DAILY DOSE: 50 MG/ 400 MG
     Route: 048
     Dates: start: 2004, end: 20131030
  2. NORVASC [Concomitant]
     Indication: HYPERTENSION
     Dosage: 10 MG
     Route: 048
  3. RAMIPRIL [Concomitant]
     Indication: HYPERTENSION
     Dosage: 5 MG
     Route: 048
  4. OXYBUTYNIN [Concomitant]
     Indication: URINARY INCONTINENCE
     Dosage: 5 MG
     Route: 048

REACTIONS (3)
  - Death [Fatal]
  - Gastric dilatation [Fatal]
  - Eyelid ptosis [Unknown]
